FAERS Safety Report 4352315-3 (Version None)
Quarter: 2004Q2

REPORT INFORMATION
  Report Type: 
  Country: None (occurrence: None)
  Receive Date: 20040428
  Receipt Date: 20040419
  Transmission Date: 20050107
  Serious: Yes (Hospitalization, Other)
  Sender: FDA-Public Use
  Company Number: FR-JNJFOC-20040305074

PATIENT
  Age: 70 Year
  Sex: Male
  Weight: 63 kg

DRUGS (4)
  1. REMICADE [Suspect]
     Indication: RHEUMATOID ARTHRITIS
     Dosage: 11 INFUSIONS
     Dates: end: 20040323
  2. METHOTREXATE [Suspect]
     Indication: RHEUMATOID ARTHRITIS
     Dosage: 15 MG, 1 IN 1 WEEK, ORAL
     Route: 048
     Dates: start: 20000101, end: 20040323
  3. PREDNISONE TAB [Concomitant]
  4. FOLIC ACID [Concomitant]

REACTIONS (3)
  - CHRONIC LYMPHOCYTIC LEUKAEMIA [None]
  - LYMPHOCYTOSIS [None]
  - LYMPHOMATOID PAPULOSIS [None]
